FAERS Safety Report 7715577-8 (Version None)
Quarter: 2011Q3

REPORT INFORMATION
  Report Type: 
  Country: None (occurrence: None)
  Receive Date: 20110829
  Receipt Date: 20110820
  Transmission Date: 20111222
  Serious: Yes (Hospitalization, Other)
  Sender: FDA-Public Use
  Company Number: US-JNJFOC-20110708285

PATIENT
  Sex: Female
  Weight: 117.94 kg

DRUGS (13)
  1. REMICADE [Suspect]
     Indication: PSORIATIC ARTHROPATHY
     Route: 042
     Dates: start: 20110415
  2. REMICADE [Suspect]
     Route: 042
     Dates: start: 20110415
  3. NEXIUM [Concomitant]
     Indication: HIATUS HERNIA
     Route: 048
     Dates: start: 19960101
  4. REMICADE [Suspect]
     Route: 042
     Dates: start: 20021213
  5. NEXIUM [Concomitant]
     Indication: GASTROOESOPHAGEAL REFLUX DISEASE
     Route: 048
     Dates: start: 19960101
  6. REMICADE [Suspect]
     Indication: RHEUMATOID ARTHRITIS
     Route: 042
     Dates: start: 20110601
  7. IMODIUM [Concomitant]
     Indication: IRRITABLE BOWEL SYNDROME
     Dosage: 1 TABLET DAILY AND 1/2 TABLET DAILY IN THE EVENING
     Route: 048
     Dates: start: 19960101
  8. REMICADE [Suspect]
     Route: 042
     Dates: start: 20021213
  9. CALCIUM CARBONATE [Concomitant]
  10. MULTIVITAMIN [Concomitant]
     Route: 048
  11. REMICADE [Suspect]
     Route: 042
     Dates: start: 20110601
  12. FOLIC ACID [Concomitant]
     Route: 048
  13. VITAMIN D [Concomitant]
     Route: 048

REACTIONS (11)
  - ASTHMA [None]
  - KNEE OPERATION [None]
  - BLOOD CHOLESTEROL INCREASED [None]
  - INFUSION RELATED REACTION [None]
  - HYPERTENSION [None]
  - COUGH [None]
  - BODY HEIGHT DECREASED [None]
  - SOMNOLENCE [None]
  - NEUROPATHY PERIPHERAL [None]
  - THROAT IRRITATION [None]
  - DIABETES MELLITUS [None]
